FAERS Safety Report 11755164 (Version 1)
Quarter: 2015Q4

REPORT INFORMATION
  Report Type: Spontaneous
  Country: ES (occurrence: ES)
  Receive Date: 20151119
  Receipt Date: 20151119
  Transmission Date: 20160304
  Serious: No
  Sender: FDA-Public Use
  Company Number: ES-ALK-ABELLO A/S-1044430

PATIENT
  Age: 46 Year
  Sex: Female

DRUGS (1)
  1. HONEY BEE VENOM [Suspect]
     Active Substance: APIS MELLIFERA VENOM

REACTIONS (1)
  - Hypersensitivity [Unknown]
